FAERS Safety Report 15310333 (Version 1)
Quarter: 2018Q3

REPORT INFORMATION
  Report Type: Spontaneous
  Country: US (occurrence: US)
  Receive Date: 20180813
  Receipt Date: 20180813
  Transmission Date: 20181010
  Serious: No
  Sender: FDA-Public Use
  Company Number: None

PATIENT
  Age: 54 Year
  Sex: Female

DRUGS (1)
  1. IBRANCE [Suspect]
     Active Substance: PALBOCICLIB

REACTIONS (5)
  - Throat irritation [None]
  - Diarrhoea [None]
  - Drug dose omission [None]
  - Nausea [None]
  - Abdominal distension [None]

NARRATIVE: CASE EVENT DATE: 20180716
